FAERS Safety Report 17563269 (Version 2)
Quarter: 2020Q3

REPORT INFORMATION
  Report Type: Spontaneous
  Country: US (occurrence: US)
  Receive Date: 20200319
  Receipt Date: 20200724
  Transmission Date: 20201102
  Serious: No
  Sender: FDA-Public Use
  Company Number: US-TEVA-2020-US-1202550

PATIENT
  Sex: Female

DRUGS (3)
  1. COPAXONE [Suspect]
     Active Substance: GLATIRAMER ACETATE
     Dosage: AUTO INJECTOR?FORM STRENGTH: UNKNOWN
     Route: 065
     Dates: start: 201807
  2. LORAZEPAM. [Concomitant]
     Active Substance: LORAZEPAM
     Route: 065
  3. LOSARTIN [Concomitant]
     Active Substance: LOSARTAN
     Route: 065

REACTIONS (4)
  - Device delivery system issue [Unknown]
  - Chest pain [Recovered/Resolved]
  - Urticaria [Recovered/Resolved]
  - Flushing [Recovered/Resolved]
